FAERS Safety Report 23047487 (Version 1)
Quarter: 2023Q4

REPORT INFORMATION
  Report Type: Spontaneous
  Country: CA (occurrence: CA)
  Receive Date: 20231010
  Receipt Date: 20231010
  Transmission Date: 20240109
  Serious: Yes (Other)
  Sender: FDA-Public Use
  Company Number: CA-drreddys-SPO/CAN/23/0179328

PATIENT
  Age: 76 Year
  Sex: Male

DRUGS (1)
  1. LENALIDOMIDE [Suspect]
     Active Substance: LENALIDOMIDE
     Indication: Plasma cell myeloma
     Route: 048

REACTIONS (6)
  - Volume blood decreased [Recovering/Resolving]
  - Arrhythmia [Recovering/Resolving]
  - Fluid retention [Recovering/Resolving]
  - Night sweats [Recovering/Resolving]
  - Swelling [Recovering/Resolving]
  - Weight increased [Recovering/Resolving]
